FAERS Safety Report 23211654 (Version 1)
Quarter: 2023Q4

REPORT INFORMATION
  Report Type: Spontaneous
  Country: US (occurrence: US)
  Receive Date: 20231121
  Receipt Date: 20231121
  Transmission Date: 20240110
  Serious: Yes (Other)
  Sender: FDA-Public Use
  Company Number: US-ENDO-CASE-0042902

PATIENT

DRUGS (3)
  1. PERCOCET [Suspect]
     Active Substance: ACETAMINOPHEN\OXYCODONE HYDROCHLORIDE
  2. LORTAB [Suspect]
     Active Substance: ACETAMINOPHEN\HYDROCODONE BITARTRATE
  3. HYDROCODONE [Suspect]
     Active Substance: HYDROCODONE

REACTIONS (4)
  - Mental disorder [Unknown]
  - Maternal exposure during pregnancy [Unknown]
  - Depression [Unknown]
  - Abortion spontaneous [Unknown]
